FAERS Safety Report 8072363-X (Version None)
Quarter: 2012Q1

REPORT INFORMATION
  Report Type: 
  Country: None (occurrence: None)
  Receive Date: 20120126
  Receipt Date: 20120112
  Transmission Date: 20120608
  Serious: Yes (Other)
  Sender: FDA-Public Use
  Company Number: GB-UCBSA-049664

PATIENT
  Age: 83 Year
  Sex: Male

DRUGS (13)
  1. LEVETIRACETAM [Suspect]
     Dosage: STRENGTH: 250 MG
     Route: 048
     Dates: start: 20111103, end: 20111122
  2. LEVETIRACETAM [Suspect]
     Route: 048
     Dates: start: 20111020, end: 20111102
  3. SENNA [Concomitant]
     Route: 048
  4. LEVETIRACETAM [Suspect]
     Indication: GRAND MAL CONVULSION
     Dosage: STRENGTH: 250 MG
     Route: 048
     Dates: start: 20111123
  5. SIMVASTATIN [Concomitant]
     Route: 048
  6. FORTISIP [Concomitant]
  7. PHENYTOIN [Concomitant]
     Route: 048
  8. PHENOBARBITAL TAB [Concomitant]
     Route: 048
  9. LATANOPROST [Concomitant]
     Route: 061
  10. LEVETIRACETAM [Suspect]
     Indication: STATUS EPILEPTICUS
     Dosage: STRENGTH: 250 MG
     Route: 048
     Dates: start: 20111123
  11. LEVETIRACETAM [Suspect]
     Dosage: STRENGTH: 250 MG
     Route: 048
     Dates: start: 20111103, end: 20111122
  12. LEVETIRACETAM [Suspect]
     Route: 048
     Dates: start: 20111020, end: 20111102
  13. ENOXAPARIN [Concomitant]
     Indication: THROMBOSIS PROPHYLAXIS

REACTIONS (4)
  - NEUTROPENIA [None]
  - BLOOD UREA INCREASED [None]
  - THROMBOCYTOPENIA [None]
  - BLOOD SODIUM INCREASED [None]
